FAERS Safety Report 16184714 (Version 1)
Quarter: 2019Q2

REPORT INFORMATION
  Report Type: Spontaneous
  Country: CL (occurrence: CL)
  Receive Date: 20190410
  Receipt Date: 20190410
  Transmission Date: 20190711
  Serious: Yes (Disabling)
  Sender: FDA-Public Use
  Company Number: None

PATIENT
  Age: 4 Year
  Sex: Female
  Weight: 14 kg

DRUGS (1)
  1. SINGULAIR [Suspect]
     Active Substance: MONTELUKAST SODIUM
     Indication: DRUG THERAPY
     Dosage: ?          QUANTITY:1 SACHET;?
     Route: 048

REACTIONS (3)
  - Nightmare [None]
  - Screaming [None]
  - Aggression [None]
